FAERS Safety Report 7231091-0 (Version None)
Quarter: 2011Q1

REPORT INFORMATION
  Report Type: 
  Country: None (occurrence: None)
  Receive Date: 20110107
  Receipt Date: 20101224
  Transmission Date: 20110831
  Serious: Yes (Life-Threatening, Hospitalization, Other)
  Sender: FDA-Public Use
  Company Number: IPC201012-000338

PATIENT
  Age: 75 Year
  Sex: Male

DRUGS (3)
  1. METFORMIN HYDROCHLORIDE [Suspect]
     Indication: TYPE 2 DIABETES MELLITUS
     Dosage: 2.6 G PER DAY
  2. TELMISARTAN [Suspect]
     Indication: HYPERTENSION
     Dosage: 80 MG PER DAY
  3. CHLORPROPAMIDE [Suspect]
     Indication: TYPE 2 DIABETES MELLITUS
     Dosage: 1 G PER DAY

REACTIONS (12)
  - AZOTAEMIA [None]
  - LACTIC ACIDOSIS [None]
  - DIARRHOEA [None]
  - DYSPNOEA [None]
  - HYPERKALAEMIA [None]
  - DEHYDRATION [None]
  - OLIGURIA [None]
  - ANAEMIA [None]
  - SHOCK [None]
  - BUNDLE BRANCH BLOCK RIGHT [None]
  - DEPRESSED LEVEL OF CONSCIOUSNESS [None]
  - SINUS TACHYCARDIA [None]
